FAERS Safety Report 8162665-0 (Version None)
Quarter: 2012Q1

REPORT INFORMATION
  Report Type: 
  Country: None (occurrence: None)
  Receive Date: 20120224
  Receipt Date: 20120217
  Transmission Date: 20120608
  Serious: Yes (Death)
  Sender: FDA-Public Use
  Company Number: US-B.I. PHARMACEUTICALS,INC./RIDGEFIELD-2011-EU-00862GD

PATIENT
  Age: 62 Year
  Sex: Male

DRUGS (1)
  1. PRADAXA [Suspect]

REACTIONS (7)
  - HAEMODYNAMIC INSTABILITY [None]
  - LACERATION [None]
  - EXSANGUINATION [None]
  - ROAD TRAFFIC ACCIDENT [None]
  - INTRA-ABDOMINAL HAEMORRHAGE [None]
  - COAGULOPATHY [None]
  - TRAUMATIC LIVER INJURY [None]
